FAERS Safety Report 12602281 (Version 2)
Quarter: 2016Q3

REPORT INFORMATION
  Report Type: Spontaneous
  Country: US (occurrence: US)
  Receive Date: 20160728
  Receipt Date: 20160729
  Transmission Date: 20161109
  Serious: No
  Sender: FDA-Public Use
  Company Number: US-PFIZER INC-2016361286

PATIENT
  Age: 40 Year
  Weight: 99.79 kg

DRUGS (14)
  1. ENBREL [Concomitant]
     Active Substance: ETANERCEPT
     Indication: ANKYLOSING SPONDYLITIS
     Dosage: 50 MG, WEEKLY
     Route: 058
     Dates: start: 2013
  2. NORTRIPTYLINE [Concomitant]
     Active Substance: NORTRIPTYLINE
     Indication: ARTHRITIS
     Dosage: 100 MG, NIGHTLY
     Route: 048
     Dates: start: 2008
  3. NORCO [Concomitant]
     Active Substance: ACETAMINOPHEN\HYDROCODONE BITARTRATE
     Indication: PAIN
     Dosage: [HYDROCODONE BITARTRATE 10]/[PARACETAMOL 325], 2 TABLETS,DAILY DIVIDED INTO HALF A TABLET 4X/DAY
     Route: 048
     Dates: start: 2010
  4. TYLENOL EXTRA STRENGTH [Concomitant]
     Active Substance: ACETAMINOPHEN
     Indication: PYREXIA
     Dosage: 500 MG, ONE TABLET 2 TO 3 TIMES DAILY AS NEEDED
     Dates: start: 20160720
  5. LYRICA [Interacting]
     Active Substance: PREGABALIN
     Indication: FIBROMYALGIA
     Dosage: TOOK ONE DOSE OF 75MG THAT NIGHT
     Dates: start: 20160721
  6. LYRICA [Interacting]
     Active Substance: PREGABALIN
     Indication: MYOFASCIAL PAIN SYNDROME
     Dosage: 50 MG, 2X/DAY
     Route: 048
     Dates: start: 20160718
  7. AUGMENTIN [Interacting]
     Active Substance: AMOXICILLIN\CLAVULANATE POTASSIUM
     Indication: LOCALISED INFECTION
     Dosage: 875 MG, 2X/DAY FOR ONE WEEK
     Route: 048
     Dates: start: 20160628
  8. AUGMENTIN [Interacting]
     Active Substance: AMOXICILLIN\CLAVULANATE POTASSIUM
     Dosage: 500 MG, 2X/DAY FOR 2 WEEKS
     Route: 048
     Dates: start: 20160716
  9. LYRICA [Suspect]
     Active Substance: PREGABALIN
     Indication: TEMPOROMANDIBULAR JOINT SYNDROME
     Dosage: 150 MG, 2X/DAY
     Route: 048
     Dates: start: 201408
  10. TYLENOL EXTRA STRENGTH [Concomitant]
     Active Substance: ACETAMINOPHEN
     Indication: ARTHRITIS
  11. LYRICA [Interacting]
     Active Substance: PREGABALIN
     Dosage: 75 MG, 2X/DAY
     Dates: start: 20160726
  12. BOTOX [Concomitant]
     Active Substance: ONABOTULINUMTOXINA
     Indication: TEMPOROMANDIBULAR JOINT SYNDROME
     Dosage: EVERY THREE MONTHS
     Route: 058
     Dates: end: 20160517
  13. MIRENA [Concomitant]
     Active Substance: LEVONORGESTREL
     Dosage: UNK
  14. MULTIVITAMIN /00097801/ [Suspect]
     Active Substance: VITAMINS
     Indication: SUPPLEMENTATION THERAPY
     Dosage: 1 CHEWABLE TABLET, DAILY
     Route: 048

REACTIONS (25)
  - Blood sodium decreased [Recovered/Resolved]
  - Orthostatic hypotension [Recovered/Resolved]
  - Blood chloride abnormal [Unknown]
  - Intentional product misuse [Unknown]
  - Dyspnoea [Unknown]
  - Dehydration [Recovered/Resolved]
  - Chest discomfort [Recovering/Resolving]
  - Tachycardia [Recovering/Resolving]
  - Defect conduction intraventricular [Unknown]
  - Asthenia [Unknown]
  - Drug interaction [Unknown]
  - Vision blurred [Recovered/Resolved]
  - Palpitations [Unknown]
  - Vision blurred [Unknown]
  - Dizziness [Recovering/Resolving]
  - Fibrin D dimer increased [Unknown]
  - Electrocardiogram abnormal [Unknown]
  - Chest pain [Unknown]
  - Carbon dioxide decreased [Unknown]
  - Mental status changes [Unknown]
  - Withdrawal syndrome [Unknown]
  - Product use issue [Unknown]
  - Burning sensation [Recovering/Resolving]
  - Paraesthesia [Recovering/Resolving]
  - Pyrexia [Not Recovered/Not Resolved]

NARRATIVE: CASE EVENT DATE: 201408
